FAERS Safety Report 23893085 (Version 2)
Quarter: 2024Q2

REPORT INFORMATION
  Report Type: Spontaneous
  Country: JP (occurrence: None)
  Receive Date: 20240524
  Receipt Date: 20240531
  Transmission Date: 20240716
  Serious: Yes (Death)
  Sender: FDA-Public Use
  Company Number: 2024A119430

PATIENT
  Age: 106 Year
  Sex: Female

DRUGS (6)
  1. LOKELMA [Suspect]
     Active Substance: SODIUM ZIRCONIUM CYCLOSILICATE
     Indication: Hypercalcaemia
     Dosage: DOSE UNKNOWN
     Route: 048
     Dates: start: 20231113, end: 20231114
  2. LOKELMA [Suspect]
     Active Substance: SODIUM ZIRCONIUM CYCLOSILICATE
     Indication: Hypercalcaemia
     Dosage: DOSE UNKNOWN
     Route: 048
     Dates: start: 20231115, end: 20231116
  3. SODIUM BICARBONATE [Concomitant]
     Active Substance: SODIUM BICARBONATE
     Dosage: DOSE UNKNOWN
     Dates: start: 20231113
  4. AZOSEMIDE [Concomitant]
     Active Substance: AZOSEMIDE
     Route: 048
     Dates: start: 20231115, end: 20231116
  5. AMLODIPINE [Concomitant]
     Active Substance: AMLODIPINE BESYLATE
     Route: 048
     Dates: start: 20231114, end: 20231115
  6. NITRODERM [Concomitant]
     Active Substance: NITROGLYCERIN
     Route: 062
     Dates: start: 20231114

REACTIONS (2)
  - End stage renal disease [Fatal]
  - Hypokalaemia [Recovered/Resolved]

NARRATIVE: CASE EVENT DATE: 20231116
